FAERS Safety Report 7835632-1 (Version None)
Quarter: 2011Q4

REPORT INFORMATION
  Report Type: 
  Country: None (occurrence: None)
  Receive Date: 20111020
  Receipt Date: 20111005
  Transmission Date: 20120403
  Serious: Yes (Life-Threatening, Hospitalization, Other)
  Sender: FDA-Public Use
  Company Number: NSR_00287_2011

PATIENT
  Age: 22 Year
  Sex: Female
  Weight: 65 kg

DRUGS (3)
  1. KETOCONAZOLE [Concomitant]
  2. TRAMADOL (TRAMADOL) 50 MG [Suspect]
     Indication: DYSMENORRHOEA
     Dosage: (50 MG, [90 X 50 MG]), (DF [UP TO 10 TABLETS PER DAY]), (DF, INTERMITTENT USE)
     Dates: start: 20090101, end: 20090101
  3. TRAMADOL (TRAMADOL) 50 MG [Suspect]
     Indication: EUPHORIC MOOD
     Dosage: (50 MG, [90 X 50 MG]), (DF [UP TO 10 TABLETS PER DAY]), (DF, INTERMITTENT USE)
     Dates: start: 20090101, end: 20090101

REACTIONS (19)
  - COGNITIVE DISORDER [None]
  - CARDIOTOXICITY [None]
  - MALAISE [None]
  - CONVULSION [None]
  - INTENTIONAL OVERDOSE [None]
  - SHOCK [None]
  - LACTIC ACIDOSIS [None]
  - HEPATIC FAILURE [None]
  - COAGULOPATHY [None]
  - HYPOTENSION [None]
  - ABNORMAL BEHAVIOUR [None]
  - LOSS OF CONSCIOUSNESS [None]
  - HYPOTHERMIA [None]
  - CARDIAC FAILURE [None]
  - TOXICITY TO VARIOUS AGENTS [None]
  - CARDIAC ARREST [None]
  - HYPOGLYCAEMIA [None]
  - RENAL FAILURE [None]
  - DRUG DEPENDENCE [None]
